FAERS Safety Report 4356043-X (Version None)
Quarter: 2004Q2

REPORT INFORMATION
  Report Type: 
  Country: None (occurrence: None)
  Receive Date: 20040505
  Receipt Date: 20040428
  Transmission Date: 20050107
  Serious: Yes (Hospitalization, Other)
  Sender: FDA-Public Use
  Company Number: 2004203719US

PATIENT
  Age: 44 Year
  Sex: Female
  Weight: 49.9 kg

DRUGS (4)
  1. DEPO-PROVERA [Suspect]
     Indication: CONTRACEPTION
     Dosage: INJECT. GIVEN EVERY 12 WKS
     Dates: start: 19960208, end: 19960208
  2. DEPO-PROVERA [Suspect]
     Indication: CONTRACEPTION
     Dosage: INJECT. GIVEN EVERY 12 WKS
     Dates: start: 20040116, end: 20040116
  3. TYLENOL (CAPLET) [Concomitant]
  4. PAXIL [Concomitant]

REACTIONS (1)
  - FOCAL NODULAR HYPERPLASIA [None]
